FAERS Safety Report 17963880 (Version 2)
Quarter: 2021Q4

REPORT INFORMATION
  Report Type: Spontaneous
  Country: DE (occurrence: DE)
  Receive Date: 20200630
  Receipt Date: 20211228
  Transmission Date: 20220303
  Serious: Yes (Hospitalization)
  Sender: FDA-Public Use
  Company Number: None

PATIENT
  Age: 86 Year
  Sex: Female
  Weight: 90 kg

DRUGS (7)
  1. EDOXABAN [Suspect]
     Active Substance: EDOXABAN
     Indication: Product used for unknown indication
     Dosage: 30 MG, QD
  2. DIGOXIN [Concomitant]
     Active Substance: DIGOXIN
     Indication: Product used for unknown indication
     Dosage: 0.097 MG, QD
  3. BISOPROLOL [Concomitant]
     Active Substance: BISOPROLOL
     Indication: Product used for unknown indication
     Dosage: 7.5 MG, BID
  4. MAGNESIUM [Concomitant]
     Active Substance: MAGNESIUM
     Indication: Product used for unknown indication
     Dosage: 1 DF, QD
  5. TORSEMIDE [Concomitant]
     Active Substance: TORSEMIDE
     Indication: Product used for unknown indication
     Dosage: 5 MG, QD, MONDAYS AND FRIDAYS BID
  6. PANTOPRAZOLE [Concomitant]
     Active Substance: PANTOPRAZOLE
     Indication: Product used for unknown indication
     Dosage: 40 MG, QD
  7. IRON [Concomitant]
     Active Substance: IRON
     Indication: Product used for unknown indication
     Dosage: 1.5 DF, TID

REACTIONS (8)
  - Pallor [Unknown]
  - Fatigue [Unknown]
  - Stress urinary incontinence [Unknown]
  - Urinary incontinence [Unknown]
  - Faeces discoloured [Unknown]
  - Balance disorder [Unknown]
  - Dizziness [Unknown]
  - Anaemia [Unknown]
